FAERS Safety Report 7099500-8 (Version None)
Quarter: 2010Q4

REPORT INFORMATION
  Report Type: 
  Country: None (occurrence: None)
  Receive Date: 20101105
  Receipt Date: 20101101
  Transmission Date: 20110411
  Serious: Yes (Life-Threatening, Hospitalization, Other)
  Sender: FDA-Public Use
  Company Number: 2010MA004085

PATIENT
  Age: 2 Day
  Sex: Male
  Weight: 3.1 kg

DRUGS (5)
  1. PAREGORIC LIQUID USP (ALPHARMA) (PAREGORIC) [Suspect]
     Indication: ANAESTHESIA
     Dosage: 100 UG/KG;1X;IV
     Route: 042
  2. FENTANYL-100 [Suspect]
     Indication: ANAESTHESIA
     Dosage: 5 UG/KG;1X;IV
     Route: 042
  3. THIOPENTAL SODIUM [Concomitant]
  4. CISATRACURIUM [Concomitant]
  5. PREV MEDS [Concomitant]

REACTIONS (6)
  - APNOEA [None]
  - LARYNGOSPASM [None]
  - MUSCLE RIGIDITY [None]
  - OXYGEN SATURATION DECREASED [None]
  - POST PROCEDURAL COMPLICATION [None]
  - SOMNOLENCE [None]
